FAERS Safety Report 6811061-4 (Version None)
Quarter: 2010Q2

REPORT INFORMATION
  Report Type: 
  Country: None (occurrence: None)
  Receive Date: 20100630
  Receipt Date: 20081212
  Transmission Date: 20101027
  Serious: No
  Sender: FDA-Public Use
  Company Number: US-PFIZER INC-2008091569

PATIENT
  Sex: Female
  Weight: 59.09 kg

DRUGS (3)
  1. ESTRING [Suspect]
     Indication: MENOPAUSE
     Dates: start: 20080717, end: 20081001
  2. ESTRING [Suspect]
     Indication: ATROPHIC VULVOVAGINITIS
  3. ACTONEL [Concomitant]

REACTIONS (3)
  - APPLICATION SITE DISCOMFORT [None]
  - APPLICATION SITE PAIN [None]
  - PELVIC PAIN [None]
